FAERS Safety Report 8237942-5 (Version None)
Quarter: 2012Q1

REPORT INFORMATION
  Report Type: 
  Country: None (occurrence: None)
  Receive Date: 20120327
  Receipt Date: 20120319
  Transmission Date: 20120608
  Serious: Yes (Other)
  Sender: FDA-Public Use
  Company Number: DE-JNJFOC-20120309989

PATIENT
  Sex: Female

DRUGS (2)
  1. MARCUMAR [Concomitant]
  2. XARELTO [Suspect]
     Indication: ATRIAL FIBRILLATION
     Route: 048
     Dates: start: 20120101

REACTIONS (3)
  - PALLOR [None]
  - DIZZINESS [None]
  - ANGINA PECTORIS [None]
